FAERS Safety Report 5349296-2 (Version None)
Quarter: 2007Q2

REPORT INFORMATION
  Report Type: 
  Country: None (occurrence: None)
  Receive Date: 20070607
  Receipt Date: 20070530
  Transmission Date: 20071010
  Serious: Yes (Hospitalization)
  Sender: FDA-Public Use
  Company Number: B0461432B

PATIENT
  Age: 60 Year
  Sex: Male

DRUGS (4)
  1. DUTASTERIDE [Suspect]
     Indication: BENIGN PROSTATIC HYPERPLASIA
     Dosage: 1CAP PER DAY
     Route: 048
     Dates: start: 20040728
  2. SIMVASTATIN [Concomitant]
  3. BISOPROLOL FUMARATE [Concomitant]
  4. PLAVIX [Concomitant]

REACTIONS (1)
  - MYOCARDIAL INFARCTION [None]
